FAERS Safety Report 6175222-2 (Version None)
Quarter: 2009Q2

REPORT INFORMATION
  Report Type: 
  Country: None (occurrence: None)
  Receive Date: 20090430
  Receipt Date: 20090127
  Transmission Date: 20091009
  Serious: No
  Sender: FDA-Public Use
  Company Number: US-ASTRAZENECA-2009UW02425

PATIENT
  Age: 39 Year
  Sex: Male

DRUGS (1)
  1. NEXIUM [Suspect]
     Indication: DYSPEPSIA
     Route: 048
     Dates: start: 20090101, end: 20090127

REACTIONS (2)
  - ENAMEL ANOMALY [None]
  - TOOTHACHE [None]
